FAERS Safety Report 17042828 (Version 1)
Quarter: 2019Q4

REPORT INFORMATION
  Report Type: Spontaneous
  Country: US (occurrence: US)
  Receive Date: 20191118
  Receipt Date: 20191118
  Transmission Date: 20200122
  Serious: No
  Sender: FDA-Public Use
  Company Number: US-AMGEN-USASP2019188174

PATIENT
  Age: 81 Year
  Sex: Female

DRUGS (9)
  1. LEVOTHYROXINE. [Concomitant]
     Active Substance: LEVOTHYROXINE
     Dosage: 75 MICROGRAM, QD
  2. OYSTER SHELL [Concomitant]
     Active Substance: OSTREA EDULIS SHELL
     Dosage: 500 MILLIGRAM, BID
  3. FOLIC ACID. [Concomitant]
     Active Substance: FOLIC ACID
     Dosage: 1 MILLIGRAM, TWO TABLETS TWICE A DAY
     Route: 048
  4. RANITIDINE. [Concomitant]
     Active Substance: RANITIDINE
     Dosage: 150 MILLIGRAM, BID
  5. FIBER [Concomitant]
     Active Substance: PSYLLIUM HUSK
     Dosage: POWDER, 1 TABLESPOON IN WATER ONCE DAILY
  6. METHOTREXATE. [Concomitant]
     Active Substance: METHOTREXATE
     Dosage: 2.5 MILLIGRAM, 7 TABLETS EVERY MONDAY ON AN EMPTY STOMACH
  7. ENBREL [Suspect]
     Active Substance: ETANERCEPT
     Indication: RHEUMATOID ARTHRITIS
     Dosage: 50 MILLIGRAM, QWK (ON FRIDAYS)
     Route: 065
  8. POTASSIUM [Concomitant]
     Active Substance: POTASSIUM
     Dosage: 20 MILLIEQUIVALENT, QD
  9. FUROSEMIDE. [Concomitant]
     Active Substance: FUROSEMIDE
     Dosage: 20 MILLIGRAM, QD

REACTIONS (1)
  - Living in residential institution [Unknown]

NARRATIVE: CASE EVENT DATE: 20190503
